FAERS Safety Report 25450394 (Version 1)
Quarter: 2025Q2

REPORT INFORMATION
  Report Type: Spontaneous
  Country: US (occurrence: US)
  Receive Date: 20250618
  Receipt Date: 20250618
  Transmission Date: 20250716
  Serious: Yes (Hospitalization)
  Sender: ROCHE
  Company Number: US-ROCHE-10000314703

PATIENT
  Age: 2 Year
  Sex: Male

DRUGS (2)
  1. HEMLIBRA [Suspect]
     Active Substance: EMICIZUMAB-KXWH
     Indication: Factor VIII deficiency
     Dosage: 60MG/0.4 ML
     Route: 058
     Dates: start: 202401
  2. AMINOCAPROIC ACID ORAL SOLN [Concomitant]

REACTIONS (2)
  - Fall [Unknown]
  - Tongue biting [Unknown]

NARRATIVE: CASE EVENT DATE: 20250607
